FAERS Safety Report 5124629-0 (Version None)
Quarter: 2006Q4

REPORT INFORMATION
  Report Type: 
  Country: None (occurrence: None)
  Receive Date: 20061006
  Receipt Date: 20061006
  Transmission Date: 20070319
  Serious: Yes (Death)
  Sender: FDA-Public Use
  Company Number: None

PATIENT
  Age: 28 Year
  Sex: Male
  Weight: 104.3273 kg

DRUGS (1)
  1. METHADONE [Suspect]
     Dosage: 120 ML [1 DOSE KILLED HIM]
     Dates: start: 20020924, end: 20020924

REACTIONS (2)
  - ALCOHOL USE [None]
  - DRUG TOXICITY [None]
